FAERS Safety Report 5726113-X (Version None)
Quarter: 2008Q2

REPORT INFORMATION
  Report Type: 
  Country: None (occurrence: None)
  Receive Date: 20080502
  Receipt Date: 20080429
  Transmission Date: 20081010
  Serious: Yes (Other)
  Sender: FDA-Public Use
  Company Number: US-ROCHE-554515

PATIENT
  Sex: Female
  Weight: 62.6 kg

DRUGS (8)
  1. BONIVA [Suspect]
     Indication: OSTEOPOROSIS
     Route: 048
     Dates: start: 20060301, end: 20080201
  2. VALTREX [Concomitant]
  3. NEXIUM [Concomitant]
  4. ZETIA [Concomitant]
  5. VESICARE [Concomitant]
  6. CYCLOBENZAPRINE HCL [Concomitant]
  7. LEVOTHYROXINE SODIUM [Concomitant]
  8. 1 CONCOMITANT DRUG [Concomitant]
     Dosage: DRUG: MUSCLE RELAXOR

REACTIONS (2)
  - DYSPEPSIA [None]
  - RESORPTION BONE INCREASED [None]
